FAERS Safety Report 16316920 (Version 2)
Quarter: 2019Q4

REPORT INFORMATION
  Report Type: Spontaneous
  Country: US (occurrence: US)
  Receive Date: 20190515
  Receipt Date: 20191016
  Transmission Date: 20200122
  Serious: No
  Sender: FDA-Public Use
  Company Number: US-SA-2019SA129484

PATIENT
  Sex: Female

DRUGS (1)
  1. ZANTAC 150 (RANITIDINE HYDROCHLORIDE) [Suspect]
     Active Substance: RANITIDINE HYDROCHLORIDE
     Dosage: UNK, UNK, ONE DAY THEN 2 DAYS LATER

REACTIONS (13)
  - Sinus disorder [Unknown]
  - Irritable bowel syndrome [Unknown]
  - Pharyngeal swelling [Unknown]
  - Dysphonia [Unknown]
  - Condition aggravated [Unknown]
  - Loss of personal independence in daily activities [Unknown]
  - Hyperchlorhydria [Unknown]
  - Constipation [Unknown]
  - Diarrhoea [Unknown]
  - Tooth disorder [Unknown]
  - Laryngitis [Unknown]
  - Gastrooesophageal reflux disease [Unknown]
  - Pain [Unknown]
